FAERS Safety Report 9216353 (Version 1)
Quarter: 2013Q2

REPORT INFORMATION
  Report Type: Spontaneous
  Country: GB (occurrence: None)
  Receive Date: 20130403
  Receipt Date: 20130403
  Transmission Date: 20140414
  Serious: Yes (Hospitalization)
  Sender: FDA-Public Use
  Company Number: E2B_00000706

PATIENT
  Sex: Female

DRUGS (8)
  1. ATORVASTATIN (UNKNOWN) [Suspect]
     Indication: HYPERTENSION
     Dosage: 10 MG
  2. BENDROFLUMETHIAZIDE) [Concomitant]
  3. AMLODIPINE [Concomitant]
  4. RAMIPRIL (RAMIPRIL) [Concomitant]
  5. ATORVASTATIN [Concomitant]
  6. SIMVASTATIN [Suspect]
     Indication: HYPERCHOLESTEROLAEMIA
     Dosage: 40 MG
  7. AMLODIPINE (UNKNOWN) [Suspect]
     Indication: HYPERTENSION
     Dosage: 10 MG
  8. RAMIPRIL [Suspect]
     Indication: HYPERTENSION
     Dosage: 10 MG

REACTIONS (17)
  - Swollen tongue [None]
  - Local swelling [None]
  - Paraesthesia [None]
  - Dizziness [None]
  - Feeling hot [None]
  - Vomiting [None]
  - Back pain [None]
  - Muscle twitching [None]
  - Heart rate increased [None]
  - Hypoaesthesia [None]
  - Hypersomnia [None]
  - Blood pressure increased [None]
  - Emotional distress [None]
  - Pain in extremity [None]
  - Hypersensitivity [None]
  - Cellulitis [None]
  - Drug interaction [None]
